FAERS Safety Report 12147150 (Version 1)
Quarter: 2016Q1

REPORT INFORMATION
  Report Type: Spontaneous
  Country: US (occurrence: US)
  Receive Date: 20160304
  Receipt Date: 20160304
  Transmission Date: 20160526
  Serious: Yes (Other)
  Sender: FDA-Public Use
  Company Number: US-PFIZER INC-2016108033

PATIENT
  Age: 45 Year
  Sex: Female

DRUGS (2)
  1. DEXTROMETHORPHAN HBR [Suspect]
     Active Substance: DEXTROMETHORPHAN HYDROBROMIDE
     Indication: ATYPICAL PNEUMONIA
     Dosage: 120 TO 180 MG, DAILY
  2. DEXTROMETHORPHAN HBR [Suspect]
     Active Substance: DEXTROMETHORPHAN HYDROBROMIDE
     Dosage: 800 MG, MORE THAN ONCE A DAY

REACTIONS (19)
  - Drug abuse [Unknown]
  - Drug tolerance [Unknown]
  - Intentional self-injury [Unknown]
  - Fatigue [Unknown]
  - Drug dependence [Unknown]
  - Anxiety [Unknown]
  - Restlessness [Unknown]
  - Tachycardia [Unknown]
  - Burning sensation [Unknown]
  - Hyperventilation [Unknown]
  - Family stress [Unknown]
  - Feeling drunk [Unknown]
  - Drug dose omission [Unknown]
  - Drug withdrawal syndrome [Unknown]
  - Depression [Unknown]
  - Psychotic disorder [Unknown]
  - Hallucinations, mixed [Unknown]
  - Hyperhidrosis [Unknown]
  - Disturbance in social behaviour [Unknown]
